FAERS Safety Report 7816638-5 (Version None)
Quarter: 2011Q4

REPORT INFORMATION
  Report Type: 
  Country: None (occurrence: None)
  Receive Date: 20111017
  Receipt Date: 20111003
  Transmission Date: 20120403
  Serious: Yes (Other)
  Sender: FDA-Public Use
  Company Number: CH-US-EMD SERONO, INC.-7050324

PATIENT
  Sex: Female
  Weight: 52 kg

DRUGS (3)
  1. MEFENAMIC ACID [Concomitant]
     Indication: PROPHYLAXIS
     Route: 048
     Dates: start: 20040101
  2. ACETAMINOPHEN [Concomitant]
     Indication: PROPHYLAXIS
     Route: 048
     Dates: start: 20040101
  3. REBIF [Suspect]
     Indication: MULTIPLE SCLEROSIS
     Route: 058
     Dates: start: 20040101

REACTIONS (8)
  - HYPOTENSION [None]
  - FACE INJURY [None]
  - LIGAMENT SPRAIN [None]
  - FALL [None]
  - CENTRAL NERVOUS SYSTEM LESION [None]
  - HEART RATE INCREASED [None]
  - SYNCOPE [None]
  - HAEMATOMA [None]
